FAERS Safety Report 5402387-X (Version None)
Quarter: 2007Q3

REPORT INFORMATION
  Report Type: 
  Country: None (occurrence: None)
  Receive Date: 20070730
  Receipt Date: 20070730
  Transmission Date: 20080115
  Serious: Yes (Hospitalization)
  Sender: FDA-Public Use
  Company Number: None

PATIENT
  Age: 47 Year
  Sex: Male

DRUGS (3)
  1. CALCIUM CARBONATE [Suspect]
     Indication: HYPOCALCAEMIA
     Dosage: 3000MG TID PO
     Route: 048
     Dates: start: 20060511, end: 20070711
  2. CALCIUM CARBONATE [Suspect]
     Indication: HYPOPARATHYROIDISM
     Dosage: 3000MG TID PO
     Route: 048
     Dates: start: 20060511, end: 20070711
  3. CALCITRIOL [Suspect]
     Dosage: 0.5MG BID PO
     Route: 048
     Dates: start: 20060609, end: 20070711

REACTIONS (1)
  - HYPERCALCAEMIA [None]
